FAERS Safety Report 8239440-1 (Version None)
Quarter: 2012Q1

REPORT INFORMATION
  Report Type: 
  Country: None (occurrence: None)
  Receive Date: 20120328
  Receipt Date: 20120319
  Transmission Date: 20120608
  Serious: Yes (Hospitalization)
  Sender: FDA-Public Use
  Company Number: US-BAYER-2011-118950

PATIENT
  Age: 20 Year
  Sex: Female
  Weight: 75 kg

DRUGS (1)
  1. YAZ [Suspect]
     Dosage: UNK
     Dates: start: 20070101, end: 20080101

REACTIONS (5)
  - PAIN [None]
  - NEPHROPATHY [None]
  - HYPERTENSION [None]
  - RENAL IMPAIRMENT [None]
  - EMOTIONAL DISTRESS [None]
